FAERS Safety Report 6253370-6 (Version None)
Quarter: 2009Q3

REPORT INFORMATION
  Report Type: 
  Country: None (occurrence: None)
  Receive Date: 20090626
  Receipt Date: 20090112
  Transmission Date: 20100115
  Serious: Yes (Other)
  Sender: FDA-Public Use
  Company Number: 607425

PATIENT
  Age: 62 Year
  Sex: Male
  Weight: 77.1 kg

DRUGS (8)
  1. XELODA [Suspect]
     Indication: COLON CANCER
     Dosage: 500 MG 2 PER DAY
     Dates: start: 20080806, end: 20081225
  2. ZOFRAN [Suspect]
     Indication: COLON CANCER
     Dosage: 8 MG 3 PER DAY
  3. ELOXATIN [Suspect]
     Indication: COLON CANCER
     Dosage: 253 MG 1 PER 3 WEEK INTRAVENOUS
     Route: 042
     Dates: start: 20080806, end: 20081212
  4. PROCHLORPERAZINE EDISYLATE [Concomitant]
  5. SENNA (SENNA) [Concomitant]
  6. DOCUSATE (DOCUSATE SODIUM) [Concomitant]
  7. ASPIRIN [Concomitant]
  8. FILGRASTIM (FILGRASTIM) [Concomitant]

REACTIONS (2)
  - ATRIAL FIBRILLATION [None]
  - HEART RATE IRREGULAR [None]
